FAERS Safety Report 10935646 (Version 1)
Quarter: 2015Q1

REPORT INFORMATION
  Report Type: Spontaneous
  Country: FR (occurrence: FR)
  Receive Date: 20150320
  Receipt Date: 20150320
  Transmission Date: 20150721
  Serious: Yes (Hospitalization, Other)
  Sender: FDA-Public Use
  Company Number: FR-009507513-1503FRA009163

PATIENT
  Age: 64 Year
  Sex: Male

DRUGS (9)
  1. EMEND [Suspect]
     Active Substance: APREPITANT
     Dosage: 125 MG, 1 CAPSULE
     Route: 048
     Dates: start: 20150218, end: 20150218
  2. OGAST [Concomitant]
     Active Substance: LANSOPRAZOLE
     Dosage: OGAST 30
     Dates: start: 20150314
  3. EMEND [Suspect]
     Active Substance: APREPITANT
     Dosage: 125MG, 1 CAPSULE
     Route: 048
     Dates: start: 20150313
  4. OGAST [Concomitant]
     Active Substance: LANSOPRAZOLE
     Dosage: OGAST 15
     Dates: start: 2004, end: 20150313
  5. KARDEGIC [Concomitant]
     Active Substance: ASPIRIN LYSINE
     Dosage: 1 SCAHET QD
     Dates: start: 201410
  6. CRESTOR [Concomitant]
     Active Substance: ROSUVASTATIN CALCIUM
     Indication: HYPERCHOLESTEROLAEMIA
  7. EMEND [Suspect]
     Active Substance: APREPITANT
     Indication: PROPHYLAXIS OF NAUSEA AND VOMITING
     Dosage: 125 MG, 1 TABLET
     Route: 048
     Dates: start: 20150126, end: 20150126
  8. EMEND [Suspect]
     Active Substance: APREPITANT
     Dosage: 80 MG, QD
     Route: 048
     Dates: start: 20150131
  9. EMEND [Suspect]
     Active Substance: APREPITANT
     Dosage: 80 MG, QD
     Route: 048
     Dates: start: 20150219, end: 20150220

REACTIONS (21)
  - Dyspnoea [Unknown]
  - Red blood cell count decreased [Unknown]
  - Asthenia [Unknown]
  - Dyspnoea [Unknown]
  - Fatigue [Unknown]
  - Abdominal pain [Unknown]
  - Nausea [Unknown]
  - Malaise [Unknown]
  - Haemoglobin decreased [Unknown]
  - Nausea [Unknown]
  - Cold sweat [Unknown]
  - Fall [Unknown]
  - Dehydration [Unknown]
  - Anxiety [Unknown]
  - Loss of consciousness [Unknown]
  - Renal disorder [Unknown]
  - Vomiting [Unknown]
  - Decreased appetite [Unknown]
  - Hiccups [Unknown]
  - Heart rate increased [Unknown]
  - Inappropriate schedule of drug administration [Unknown]

NARRATIVE: CASE EVENT DATE: 20150128
